FAERS Safety Report 5856207-X (Version None)
Quarter: 2008Q3

REPORT INFORMATION
  Report Type: 
  Country: None (occurrence: None)
  Receive Date: 20080825
  Receipt Date: 20080820
  Transmission Date: 20090109
  Serious: Yes (Hospitalization)
  Sender: FDA-Public Use
  Company Number: A0744011A

PATIENT
  Age: 50 Year
  Sex: Female
  Weight: 90 kg

DRUGS (4)
  1. AVANDAMET [Suspect]
     Dosage: 4MG TWICE PER DAY
     Route: 048
     Dates: start: 20061001, end: 20070801
  2. ZOCOR [Concomitant]
  3. LIPITOR [Concomitant]
  4. CRESTOR [Concomitant]

REACTIONS (1)
  - MYOCARDIAL INFARCTION [None]
